FAERS Safety Report 12394330 (Version 1)
Quarter: 2016Q2

REPORT INFORMATION
  Report Type: Report from Study
  Country: CA (occurrence: CA)
  Receive Date: 20160523
  Receipt Date: 20160523
  Transmission Date: 20160815
  Serious: Yes (Death, Other)
  Sender: FDA-Public Use
  Company Number: CA-009507513-1605CAN010166

PATIENT
  Age: 56 Year
  Sex: Female

DRUGS (2)
  1. EMEND [Suspect]
     Active Substance: APREPITANT
     Indication: LUNG NEOPLASM MALIGNANT
     Dosage: 80 MG, QD, DAY 2 AND DAY 3
     Route: 048
  2. EMEND [Suspect]
     Active Substance: APREPITANT
     Indication: LUNG NEOPLASM MALIGNANT
     Dosage: 125 MG, ONCE, DAY 1
     Route: 048

REACTIONS (1)
  - Death [Fatal]

NARRATIVE: CASE EVENT DATE: 20160501
